FAERS Safety Report 25893813 (Version 1)
Quarter: 2025Q4

REPORT INFORMATION
  Report Type: Spontaneous
  Country: JP (occurrence: JP)
  Receive Date: 20251008
  Receipt Date: 20251008
  Transmission Date: 20260118
  Serious: Yes (Hospitalization)
  Sender: ACCORD
  Company Number: JP-MLMSERVICE-20250917-PI646383-00077-1

PATIENT
  Age: 27 Year
  Sex: Male
  Weight: 64.5 kg

DRUGS (8)
  1. CAPECITABINE [Suspect]
     Active Substance: CAPECITABINE
     Indication: Oesophageal adenocarcinoma
  2. OXALIPLATIN [Suspect]
     Active Substance: OXALIPLATIN
     Indication: Oesophageal adenocarcinoma
  3. ZOLBETUXIMAB [Suspect]
     Active Substance: ZOLBETUXIMAB
     Indication: Oesophageal adenocarcinoma
     Dosage: 800 MG/M2 FOR THE FIRST CYCLE, 600 MG/M2 FROM THE SECOND CYCLE ONWARD
  4. ZOLBETUXIMAB [Suspect]
     Active Substance: ZOLBETUXIMAB
     Indication: Oesophageal adenocarcinoma
     Dosage: 800 MG/M2 FOR THE FIRST CYCLE, 600 MG/M2 FROM THE SECOND CYCLE ONWARD
  5. ZOLBETUXIMAB [Suspect]
     Active Substance: ZOLBETUXIMAB
     Indication: Metastases to liver
     Dosage: 800 MG/M2 FOR THE FIRST CYCLE, 600 MG/M2 FROM THE SECOND CYCLE ONWARD
  6. ZOLBETUXIMAB [Suspect]
     Active Substance: ZOLBETUXIMAB
     Indication: Metastases to liver
     Dosage: 800 MG/M2 FOR THE FIRST CYCLE, 600 MG/M2 FROM THE SECOND CYCLE ONWARD
  7. CAPECITABINE [Suspect]
     Active Substance: CAPECITABINE
     Indication: Metastases to liver
  8. OXALIPLATIN [Suspect]
     Active Substance: OXALIPLATIN
     Indication: Metastases to liver

REACTIONS (4)
  - Gastritis [Recovering/Resolving]
  - Neuropathy peripheral [Unknown]
  - Dysaesthesia [Unknown]
  - Nausea [Unknown]
